FAERS Safety Report 11009478 (Version 1)
Quarter: 2015Q2

REPORT INFORMATION
  Report Type: Spontaneous
  Country: DK (occurrence: DK)
  Receive Date: 20150410
  Receipt Date: 20150410
  Transmission Date: 20150821
  Serious: Yes (Hospitalization)
  Sender: FDA-Public Use
  Company Number: PHHY2013DK126419

PATIENT
  Age: 54 Year
  Sex: Female
  Weight: 70 kg

DRUGS (2)
  1. TEGRETOL XR [Suspect]
     Active Substance: CARBAMAZEPINE
     Indication: TRIGEMINAL NEURALGIA
     Dosage: 400 MG, BID
     Route: 048
     Dates: start: 20130626, end: 20130713
  2. THIAMAZOL [Concomitant]
     Active Substance: METHIMAZOLE
     Indication: TOXIC NODULAR GOITRE
     Route: 065
     Dates: start: 20121015

REACTIONS (14)
  - Emotional distress [Unknown]
  - Pain [Unknown]
  - Head discomfort [Unknown]
  - Hyperthyroidism [Unknown]
  - Polyneuropathy [Unknown]
  - Dizziness [Unknown]
  - Neuralgia [Recovering/Resolving]
  - Hypersensitivity [Unknown]
  - Dysaesthesia [Unknown]
  - Rash [Unknown]
  - Mobility decreased [Unknown]
  - Arthralgia [Unknown]
  - Paraesthesia [Unknown]
  - Fatigue [Unknown]

NARRATIVE: CASE EVENT DATE: 20130720
